FAERS Safety Report 10935085 (Version 2)
Quarter: 2015Q1

REPORT INFORMATION
  Report Type: Report from Study
  Country: US (occurrence: US)
  Receive Date: 20150320
  Receipt Date: 20150327
  Transmission Date: 20150721
  Serious: Yes (Death)
  Sender: FDA-Public Use
  Company Number: US-ROCHE-1549317

PATIENT
  Age: 29 Year
  Sex: Female

DRUGS (4)
  1. CARBOPLATIN. [Suspect]
     Active Substance: CARBOPLATIN
     Indication: LUNG CARCINOMA CELL TYPE UNSPECIFIED STAGE IV
     Route: 042
  2. GDC-0980 (PI3K/MTOR INHIBITOR) [Suspect]
     Active Substance: APITOLISIB
     Indication: LUNG CARCINOMA CELL TYPE UNSPECIFIED STAGE IV
     Dosage: REPORTEDLY: ARM B; COHORT 1; GDC-0980 (PI3K/MTOR INHIBITOR) DOSE LEVEL 25; SCREENING DATE 27/JUL/201
     Route: 048
     Dates: end: 20130117
  3. BEVACIZUMAB [Suspect]
     Active Substance: BEVACIZUMAB
     Indication: LUNG CARCINOMA CELL TYPE UNSPECIFIED STAGE IV
     Route: 042
  4. PACLITAXEL. [Suspect]
     Active Substance: PACLITAXEL
     Indication: LUNG CARCINOMA CELL TYPE UNSPECIFIED STAGE IV
     Route: 042

REACTIONS (1)
  - Death [Fatal]

NARRATIVE: CASE EVENT DATE: 20130504
